FAERS Safety Report 5060477-8 (Version None)
Quarter: 2006Q3

REPORT INFORMATION
  Report Type: 
  Country: None (occurrence: None)
  Receive Date: 20060719
  Receipt Date: 20060719
  Transmission Date: 20061208
  Serious: Yes (Hospitalization)
  Sender: FDA-Public Use
  Company Number: None

PATIENT
  Sex: Male
  Weight: 135 kg

DRUGS (2)
  1. LITHIUM CARBONATE [Suspect]
     Indication: BIPOLAR DISORDER
     Dosage: 900-2400 MG QDAY PO
     Route: 048
     Dates: start: 20010927, end: 20060411
  2. DILTIAZEM HCL [Concomitant]

REACTIONS (17)
  - AGITATION [None]
  - ANTIPSYCHOTIC DRUG LEVEL BELOW THERAPEUTIC [None]
  - BLOOD CREATININE INCREASED [None]
  - BLOOD SODIUM INCREASED [None]
  - DISORIENTATION [None]
  - DRUG LEVEL FLUCTUATING [None]
  - DYSARTHRIA [None]
  - FEELING ABNORMAL [None]
  - HALLUCINATION [None]
  - INSOMNIA [None]
  - NEPHROGENIC DIABETES INSIPIDUS [None]
  - PRESSURE OF SPEECH [None]
  - RENAL IMPAIRMENT [None]
  - TACHYPHRENIA [None]
  - TREMOR [None]
  - URINE OSMOLARITY DECREASED [None]
  - VERBIGERATION [None]
